FAERS Safety Report 18188312 (Version 2)
Quarter: 2020Q3

REPORT INFORMATION
  Report Type: Spontaneous
  Country: BR (occurrence: BR)
  Receive Date: 20200824
  Receipt Date: 20200922
  Transmission Date: 20201103
  Serious: Yes (Hospitalization)
  Sender: FDA-Public Use
  Company Number: BR-GLAXOSMITHKLINE-BR2020AMR164919

PATIENT
  Age: 76 Year
  Sex: Female
  Weight: 47 kg

DRUGS (2)
  1. VANISTO [Suspect]
     Active Substance: UMECLIDINIUM BROMIDE
     Indication: CHRONIC OBSTRUCTIVE PULMONARY DISEASE
     Dosage: UNK
  2. RELVAR ELLIPTA [Suspect]
     Active Substance: FLUTICASONE FUROATE\VILANTEROL TRIFENATATE
     Indication: CHRONIC OBSTRUCTIVE PULMONARY DISEASE
     Dosage: 1 DF, QD

REACTIONS (3)
  - Chronic obstructive pulmonary disease [Recovered/Resolved]
  - Dry throat [Recovered/Resolved]
  - Dyspnoea [Recovered/Resolved]
